FAERS Safety Report 8398052-X (Version None)
Quarter: 2012Q2

REPORT INFORMATION
  Report Type: 
  Country: None (occurrence: None)
  Receive Date: 20120531
  Receipt Date: 20110416
  Transmission Date: 20120825
  Serious: No
  Sender: FDA-Public Use
  Company Number: US-NOVEN-11US002281

PATIENT
  Sex: Male
  Weight: 62.132 kg

DRUGS (2)
  1. DAYTRANA [Suspect]
     Indication: ATTENTION DEFICIT/HYPERACTIVITY DISORDER
     Dosage: 30 MG, QD
     Route: 062
     Dates: start: 20070101
  2. CLONIDINE [Concomitant]
     Indication: SLEEP DISORDER
     Dosage: 0.1 MG X 2 TABLETS, BEDTIME
     Route: 048
     Dates: start: 20030101

REACTIONS (3)
  - ABNORMAL BEHAVIOUR [None]
  - PRODUCT QUALITY ISSUE [None]
  - DRUG DOSE OMISSION [None]
